FAERS Safety Report 4564441-4 (Version None)
Quarter: 2005Q1

REPORT INFORMATION
  Report Type: 
  Country: None (occurrence: None)
  Receive Date: 20050128
  Receipt Date: 20031201
  Transmission Date: 20050727
  Serious: No
  Sender: FDA-Public Use
  Company Number: US-GLAXOSMITHKLINE-A0441491A

PATIENT
  Age: 7 Year
  Sex: Female

DRUGS (4)
  1. EPIVIR [Suspect]
     Indication: HIV INFECTION
     Dosage: 8ML TWICE PER DAY
     Route: 048
  2. RETROVIR [Suspect]
     Indication: HIV INFECTION
     Dosage: 14ML TWICE PER DAY
     Route: 048
  3. ZIAGEN [Suspect]
     Indication: HIV INFECTION
     Dosage: 8ML TWICE PER DAY
     Route: 048
  4. CLARITIN [Concomitant]

REACTIONS (3)
  - ABDOMINAL PAIN UPPER [None]
  - CONFUSIONAL STATE [None]
  - ILL-DEFINED DISORDER [None]
